FAERS Safety Report 11428201 (Version 1)
Quarter: 2015Q3

REPORT INFORMATION
  Report Type: Spontaneous
  Country: US (occurrence: US)
  Receive Date: 20150828
  Receipt Date: 20150828
  Transmission Date: 20151125
  Serious: No
  Sender: FDA-Public Use
  Company Number: US-ROCHE-777209

PATIENT
  Age: 59 Year
  Sex: Female
  Weight: 79.45 kg

DRUGS (4)
  1. PEGASYS [Suspect]
     Active Substance: PEGINTERFERON ALFA-2A
     Route: 058
  2. RIBASPHERE RIBAPAK [Suspect]
     Active Substance: RIBAVIRIN
     Indication: CHRONIC HEPATITIS C
     Route: 065
  3. RIBASPHERE RIBAPAK [Suspect]
     Active Substance: RIBAVIRIN
     Dosage: DIVIDED DOSES (600/600)
     Route: 065
  4. PEGASYS [Suspect]
     Active Substance: PEGINTERFERON ALFA-2A
     Indication: CHRONIC HEPATITIS C
     Dosage: FORM: PRE FILLED SYRINGE
     Route: 058

REACTIONS (7)
  - Pyrexia [Unknown]
  - Feeling cold [Unknown]
  - Pain [Unknown]
  - Nausea [Unknown]
  - Chest discomfort [Unknown]
  - Pain in extremity [Unknown]
  - Chills [Unknown]

NARRATIVE: CASE EVENT DATE: 20110511
